FAERS Safety Report 5278975-0 (Version None)
Quarter: 2007Q1

REPORT INFORMATION
  Report Type: 
  Country: None (occurrence: None)
  Receive Date: 20070328
  Receipt Date: 20061027
  Transmission Date: 20070707
  Serious: No
  Sender: FDA-Public Use
  Company Number: US-AMGEN-KDL198381

PATIENT

DRUGS (4)
  1. NEULASTA [Suspect]
     Indication: CHEMOTHERAPY
     Route: 065
  2. TAXOTERE [Concomitant]
     Route: 065
  3. XELODA [Concomitant]
     Route: 065
  4. OXALIPLATIN [Concomitant]
     Route: 065

REACTIONS (1)
  - DERMATITIS PSORIASIFORM [None]
